FAERS Safety Report 7486805-1 (Version None)
Quarter: 2011Q2

REPORT INFORMATION
  Report Type: 
  Country: None (occurrence: None)
  Receive Date: 20110517
  Receipt Date: 20110517
  Transmission Date: 20111010
  Serious: Yes (Hospitalization)
  Sender: FDA-Public Use
  Company Number: PHHO2009IT02849

PATIENT
  Sex: Male
  Weight: 71 kg

DRUGS (6)
  1. EVEROLIMUS [Suspect]
     Indication: LIVER TRANSPLANT
     Dosage: UNK
     Route: 048
     Dates: start: 20081013, end: 20090215
  2. HEPATITIS B IMMUNE GLOBULIN (HUMAN) [Concomitant]
  3. OMEPRAZOLE [Concomitant]
  4. HEPSERA [Concomitant]
  5. TACROLIMUS [Suspect]
     Indication: LIVER TRANSPLANT
     Dosage: UNK
     Route: 048
     Dates: start: 20081013
  6. CLONIDINE HCL [Concomitant]

REACTIONS (4)
  - IMPAIRED HEALING [None]
  - ABDOMINAL HERNIA [None]
  - ABDOMINAL PAIN [None]
  - CHEMICAL PERITONITIS [None]
